FAERS Safety Report 14933804 (Version 1)
Quarter: 2018Q2

REPORT INFORMATION
  Report Type: Spontaneous
  Country: US (occurrence: US)
  Receive Date: 20180524
  Receipt Date: 20180524
  Transmission Date: 20180711
  Serious: No
  Sender: FDA-Public Use
  Company Number: US-TARO-2017TAR00915

PATIENT
  Age: 39 Year
  Sex: Female
  Weight: 49.89 kg

DRUGS (1)
  1. FEVERALL INFANTS [Suspect]
     Active Substance: ACETAMINOPHEN
     Dosage: UNK
     Route: 047
     Dates: start: 20171021, end: 20171021

REACTIONS (3)
  - Eye pruritus [Recovered/Resolved]
  - Accidental exposure to product [Recovered/Resolved]
  - Eye irritation [Recovered/Resolved]

NARRATIVE: CASE EVENT DATE: 20171021
